FAERS Safety Report 14310158 (Version 1)
Quarter: 2017Q4

REPORT INFORMATION
  Report Type: Report from Study
  Country: FR (occurrence: FR)
  Receive Date: 20171220
  Receipt Date: 20171220
  Transmission Date: 20180321
  Serious: Yes (Other)
  Sender: FDA-Public Use
  Company Number: FR-TEVA-2017-FR-833086

PATIENT
  Age: 50 Year
  Sex: Male
  Weight: 86 kg

DRUGS (4)
  1. EMTRICITABINE/TENOFOVIR DF [Suspect]
     Active Substance: EMTRICITABINE
     Indication: HIV INFECTION
     Dosage: UNK
     Route: 065
     Dates: start: 2007
  2. EMTRICITABINE/TENOFOVIR DF [Suspect]
     Active Substance: EMTRICITABINE
     Dosage: 200 UNKNOWN, UNK
     Route: 048
     Dates: start: 20110110, end: 20170915
  3. PREZISTA [Concomitant]
     Active Substance: DARUNAVIR ETHANOLATE
     Dosage: 800 UNKNOWN, UNK
     Route: 048
     Dates: start: 20110110, end: 20170915
  4. NORVIR [Concomitant]
     Active Substance: RITONAVIR
     Dosage: 100 UNKNOWN, UNK
     Route: 048
     Dates: start: 20110110, end: 20170915

REACTIONS (3)
  - Treatment noncompliance [Unknown]
  - Virologic failure [Recovered/Resolved]
  - Genotype drug resistance test positive [Unknown]

NARRATIVE: CASE EVENT DATE: 20170915
